FAERS Safety Report 25249883 (Version 1)
Quarter: 2025Q2

REPORT INFORMATION
  Report Type: Spontaneous
  Country: US (occurrence: None)
  Receive Date: 20250428
  Receipt Date: 20250428
  Transmission Date: 20250717
  Serious: Yes (Hospitalization)
  Sender: FDA-CTU
  Company Number: None

PATIENT
  Age: 77 Year
  Sex: Male

DRUGS (1)
  1. INLYTA [Suspect]
     Active Substance: AXITINIB
     Dosage: 3 MG TWICE A DAY ORAL ?
     Route: 048

REACTIONS (4)
  - Respiratory disorder [None]
  - Hospitalisation [None]
  - Therapy interrupted [None]
  - Gait disturbance [None]
